FAERS Safety Report 6688007-5 (Version None)
Quarter: 2010Q2

REPORT INFORMATION
  Report Type: 
  Country: None (occurrence: None)
  Receive Date: 20100420
  Receipt Date: 20100412
  Transmission Date: 20101027
  Serious: Yes (Other)
  Sender: FDA-Public Use
  Company Number: US-ASTRAZENECA-2008UW24355

PATIENT
  Age: 18944 Day
  Sex: Male

DRUGS (6)
  1. SEROQUEL [Suspect]
     Route: 048
     Dates: start: 20051130
  2. ACTOS [Concomitant]
     Dates: start: 20071119
  3. GLUCOPHAGE [Concomitant]
     Dates: start: 20071119
  4. ZOCOR [Concomitant]
     Dates: start: 20071119
  5. DIOVAN [Concomitant]
     Dates: start: 20071119
  6. DIOVAN HCT [Concomitant]
     Dosage: 12.5-80MG
     Route: 048
     Dates: start: 20070202

REACTIONS (3)
  - DIABETES MELLITUS INADEQUATE CONTROL [None]
  - HYPOAESTHESIA [None]
  - NEUROPATHY PERIPHERAL [None]
